FAERS Safety Report 6434846-5 (Version None)
Quarter: 2009Q4

REPORT INFORMATION
  Report Type: 
  Country: None (occurrence: None)
  Receive Date: 20091110
  Receipt Date: 20091106
  Transmission Date: 20100525
  Serious: Yes (Life-Threatening, Hospitalization)
  Sender: FDA-Public Use
  Company Number: DE-JNJFOC-20091101889

PATIENT
  Age: 70 Year
  Sex: Male

DRUGS (12)
  1. HALDOL DECANOAT [Suspect]
     Indication: DRUG USE FOR UNKNOWN INDICATION
     Route: 030
  2. ERGENYL [Suspect]
     Route: 048
  3. ERGENYL [Suspect]
     Route: 048
  4. ERGENYL [Suspect]
     Route: 048
  5. ERGENYL [Suspect]
     Indication: DRUG USE FOR UNKNOWN INDICATION
     Route: 048
  6. QUILONUM RETARD [Interacting]
     Indication: DRUG USE FOR UNKNOWN INDICATION
     Route: 048
  7. EUNERPAN [Suspect]
     Route: 048
  8. EUNERPAN [Suspect]
     Route: 048
  9. EUNERPAN [Suspect]
     Indication: DRUG USE FOR UNKNOWN INDICATION
     Route: 048
  10. ENALAPRIL [Interacting]
     Indication: DRUG USE FOR UNKNOWN INDICATION
     Route: 048
  11. ALLOPURINOL [Concomitant]
     Route: 048
  12. AKINETON [Concomitant]

REACTIONS (3)
  - ATRIOVENTRICULAR BLOCK COMPLETE [None]
  - DRUG INTERACTION [None]
  - THERAPEUTIC AGENT TOXICITY [None]
